FAERS Safety Report 14446892 (Version 2)
Quarter: 2018Q1

REPORT INFORMATION
  Report Type: Spontaneous
  Country: JP (occurrence: JP)
  Receive Date: 20180126
  Receipt Date: 20180206
  Transmission Date: 20180509
  Serious: Yes (Other)
  Sender: FDA-Public Use
  Company Number: JP-BRISTOL-MYERS SQUIBB COMPANY-BMS-2018-007480

PATIENT
  Age: 62 Year
  Sex: Male

DRUGS (5)
  1. ETOPOSIDE PHOSPHATE [Suspect]
     Active Substance: ETOPOSIDE PHOSPHATE
     Indication: NEUROENDOCRINE CARCINOMA
     Dosage: 80 MG/M2, UNK
     Route: 065
  2. PEGFILGRASTIM [Concomitant]
     Active Substance: PEGFILGRASTIM
     Indication: PRODUCT USED FOR UNKNOWN INDICATION
     Route: 065
  3. CARBOPLATIN. [Suspect]
     Active Substance: CARBOPLATIN
     Indication: NEUROENDOCRINE CARCINOMA
     Dosage: 1 DF, UNK
     Route: 065
  4. TENIPOSIDE. [Suspect]
     Active Substance: TENIPOSIDE
     Indication: NEUROENDOCRINE CARCINOMA
     Dosage: 80 MG/M2, UNK
     Route: 065
  5. LEVOFLOXACIN. [Concomitant]
     Active Substance: LEVOFLOXACIN
     Indication: PRODUCT USED FOR UNKNOWN INDICATION
     Route: 065

REACTIONS (4)
  - Febrile neutropenia [Unknown]
  - Pseudomonas test positive [Unknown]
  - Product use in unapproved indication [Unknown]
  - Neutropenia [Unknown]
